FAERS Safety Report 9901381 (Version 1)
Quarter: 2014Q1

REPORT INFORMATION
  Report Type: Spontaneous
  Country: US (occurrence: US)
  Receive Date: 20140217
  Receipt Date: 20140217
  Transmission Date: 20141002
  Serious: Yes (Hospitalization, Other)
  Sender: FDA-Public Use
  Company Number: US-PFIZER INC-2014041942

PATIENT
  Sex: Male

DRUGS (1)
  1. PHENYTOIN [Suspect]
     Dosage: 0.5 ML, 3X/DAY

REACTIONS (3)
  - Wrong technique in drug usage process [Unknown]
  - Partial seizures [Unknown]
  - Anticonvulsant drug level decreased [Unknown]
